FAERS Safety Report 9607022 (Version 4)
Quarter: 2014Q1

REPORT INFORMATION
  Report Type: Report from Study
  Country: FR (occurrence: FR)
  Receive Date: 20131009
  Receipt Date: 20140115
  Transmission Date: 20141002
  Serious: Yes (Hospitalization)
  Sender: FDA-Public Use
  Company Number: FR-ROCHE-1279568

PATIENT
  Age: 54 Year
  Sex: Female

DRUGS (20)
  1. PERTUZUMAB [Suspect]
     Indication: BREAST CANCER
     Dosage: LOADING DOSE.
     Route: 042
     Dates: start: 20130627
  2. PERTUZUMAB [Suspect]
     Dosage: MAINTENANCE DOSE. LAST DOSE PRIOR TO THE EVENT: 28/AUG/2013
     Route: 042
  3. TRASTUZUMAB [Suspect]
     Indication: BREAST CANCER
     Dosage: LOADING DOSE
     Route: 042
     Dates: start: 20130627
  4. TRASTUZUMAB [Suspect]
     Dosage: MAINTENANCE DOSE. LAST DOSE PRIOR TO THE EVENT: 28/AUG/2013, 504 MG
     Route: 042
  5. PACLITAXEL [Suspect]
     Indication: BREAST CANCER
     Dosage: LAST DOSE PRIOR TO THE EVENT: 04/SEP/2013.
     Route: 042
     Dates: start: 20130627
  6. IMODIUM [Concomitant]
     Route: 065
     Dates: start: 20130629, end: 20130630
  7. XYZALL [Concomitant]
     Dosage: 1 PILL PER DAY.
     Route: 065
     Dates: start: 20130828
  8. FERINJECT [Concomitant]
     Route: 065
     Dates: start: 20130828, end: 20130828
  9. SEROPLEX [Concomitant]
     Route: 065
     Dates: start: 2013
  10. DIAMICRON [Concomitant]
     Route: 065
     Dates: start: 2013
  11. MOPRAL (FRANCE) [Concomitant]
     Route: 065
     Dates: start: 2013
  12. AMLOR [Concomitant]
     Route: 065
     Dates: start: 2013
  13. ASPEGIC (FRANCE) [Concomitant]
     Route: 065
     Dates: start: 2013
  14. CRESTOR [Concomitant]
     Route: 065
     Dates: start: 2013
  15. ZOPHREN [Concomitant]
     Indication: PROPHYLAXIS
     Route: 065
     Dates: start: 20130627
  16. SOLU-MEDROL [Concomitant]
     Indication: PROPHYLAXIS
     Route: 065
     Dates: start: 20130627
  17. POLARAMINE [Concomitant]
     Indication: PROPHYLAXIS
     Route: 065
     Dates: start: 20130627
  18. AZANTAC [Concomitant]
     Indication: PROPHYLAXIS
     Route: 065
     Dates: start: 20130627
  19. GLUCOPHAGE [Concomitant]
     Route: 065
     Dates: end: 20130919
  20. GLUCOPHAGE [Concomitant]
     Route: 065
     Dates: start: 2013

REACTIONS (1)
  - Renal failure [Recovered/Resolved]
